FAERS Safety Report 6973377-0 (Version None)
Quarter: 2010Q3

REPORT INFORMATION
  Report Type: 
  Country: None (occurrence: None)
  Receive Date: 20100909
  Receipt Date: 20100826
  Transmission Date: 20110219
  Serious: Yes (Hospitalization)
  Sender: FDA-Public Use
  Company Number: US-CELGENEUS-163-21880-10080771

PATIENT
  Age: 80 Year
  Sex: Female
  Weight: 51.2 kg

DRUGS (12)
  1. REVLIMID [Suspect]
     Indication: MULTIPLE MYELOMA
     Route: 048
     Dates: start: 20100708, end: 20100728
  2. REVLIMID [Suspect]
     Route: 048
     Dates: start: 20100513
  3. MELPHALAN [Suspect]
     Indication: MULTIPLE MYELOMA
     Route: 048
     Dates: start: 20100708, end: 20100711
  4. MELPHALAN [Suspect]
     Route: 048
     Dates: start: 20100513
  5. PREDNISONE [Suspect]
     Indication: MULTIPLE MYELOMA
     Route: 048
     Dates: start: 20100708, end: 20100711
  6. PREDNISONE [Suspect]
     Route: 048
     Dates: start: 20100513
  7. PREDNISONE [Suspect]
     Route: 048
  8. ASPIRIN [Concomitant]
     Indication: PRODUCT USED FOR UNKNOWN INDICATION
     Route: 048
     Dates: start: 20100708
  9. ASPIRIN [Concomitant]
     Route: 048
     Dates: start: 20100513
  10. VICODIN [Concomitant]
     Indication: PRODUCT USED FOR UNKNOWN INDICATION
     Dosage: 5-325MG
     Route: 065
  11. DULCOLAX [Concomitant]
     Indication: PRODUCT USED FOR UNKNOWN INDICATION
     Route: 065
  12. COMPAZINE [Concomitant]
     Indication: PRODUCT USED FOR UNKNOWN INDICATION
     Route: 065

REACTIONS (5)
  - ARTHRITIS INFECTIVE [None]
  - BACTERAEMIA [None]
  - LYMPHOPENIA [None]
  - MENTAL STATUS CHANGES [None]
  - RESPIRATORY ACIDOSIS [None]
